FAERS Safety Report 26213900 (Version 1)
Quarter: 2025Q4

REPORT INFORMATION
  Report Type: Spontaneous
  Country: US (occurrence: US)
  Receive Date: 20251230
  Receipt Date: 20251230
  Transmission Date: 20260118
  Serious: No
  Sender: MYLAN
  Company Number: US-MYLANLABS-2025M1106268

PATIENT
  Age: 51 Year
  Sex: Female
  Weight: 90.7 kg

DRUGS (2)
  1. ESTRADIOL TRANSDERMAL SYSTEM [Suspect]
     Active Substance: ESTRADIOL
     Indication: Hormone level abnormal
     Dosage: 0.0375 MILLIGRAM, QD (PER DAY, ONCE WEEKLY)
     Dates: start: 202511
  2. ESTRADIOL TRANSDERMAL SYSTEM [Suspect]
     Active Substance: ESTRADIOL
     Dosage: 0.0375 MILLIGRAM, QD (PER DAY, ONCE WEEKLY)
     Dates: start: 2025

REACTIONS (4)
  - Product substitution issue [Unknown]
  - Product adhesion issue [Unknown]
  - Product size issue [Unknown]
  - Product quality issue [Unknown]

NARRATIVE: CASE EVENT DATE: 20251119
